FAERS Safety Report 12558107 (Version 1)
Quarter: 2016Q3

REPORT INFORMATION
  Report Type: Spontaneous
  Country: SE (occurrence: SE)
  Receive Date: 20160714
  Receipt Date: 20160714
  Transmission Date: 20161109
  Serious: Yes (Life-Threatening, Hospitalization)
  Sender: FDA-Public Use
  Company Number: SE-INCYTE CORPORATION-2016IN004133

PATIENT
  Age: 54 Year
  Sex: Male

DRUGS (1)
  1. JAKAFI [Suspect]
     Active Substance: RUXOLITINIB
     Indication: MYELOFIBROSIS
     Dosage: 15 MG BID
     Route: 048
     Dates: start: 20150127, end: 20160315

REACTIONS (2)
  - Multiple organ dysfunction syndrome [Not Recovered/Not Resolved]
  - Clostridial infection [Not Recovered/Not Resolved]

NARRATIVE: CASE EVENT DATE: 20160315
